FAERS Safety Report 24824132 (Version 1)
Quarter: 2025Q1

REPORT INFORMATION
  Report Type: Spontaneous
  Country: FR (occurrence: FR)
  Receive Date: 20250109
  Receipt Date: 20250109
  Transmission Date: 20250409
  Serious: Yes (Hospitalization)
  Sender: TEVA
  Company Number: None

PATIENT
  Age: 52 Year
  Sex: Female
  Weight: 104 kg

DRUGS (2)
  1. ANASTROZOLE [Suspect]
     Active Substance: ANASTROZOLE
     Indication: Breast cancer
     Route: 048
     Dates: start: 202301, end: 20241004
  2. ABEMACICLIB [Suspect]
     Active Substance: ABEMACICLIB
     Indication: Breast cancer
     Route: 048
     Dates: start: 202301, end: 20240920

REACTIONS (3)
  - Jaundice [Not Recovered/Not Resolved]
  - Portal fibrosis [Not Recovered/Not Resolved]
  - Portal hypertension [Not Recovered/Not Resolved]

NARRATIVE: CASE EVENT DATE: 20240916
